FAERS Safety Report 6194250-4 (Version None)
Quarter: 2009Q2

REPORT INFORMATION
  Report Type: 
  Country: None (occurrence: None)
  Receive Date: 20090519
  Receipt Date: 20070925
  Transmission Date: 20091009
  Serious: Yes (Hospitalization, Other)
  Sender: FDA-Public Use
  Company Number: US-ASTRAZENECA-2006UW22237

PATIENT
  Age: 12941 Day
  Sex: Male
  Weight: 121.8 kg

DRUGS (16)
  1. SEROQUEL [Suspect]
     Dosage: 25 MG-400 MG
     Route: 048
     Dates: start: 20010421
  2. METFORMIN HCL [Concomitant]
     Indication: DIABETES MELLITUS
     Route: 048
  3. ATENOLOL [Concomitant]
     Indication: HYPERTENSION
     Dosage: 25-50 MG, EVERY DAY
     Route: 048
  4. LOVASTATIN [Concomitant]
     Indication: BLOOD CHOLESTEROL INCREASED
     Dosage: 20-80 MG
     Route: 048
  5. GEMFIBROZIL [Concomitant]
     Route: 065
  6. PRILOSEC [Concomitant]
     Route: 065
  7. VIVACTIL [Concomitant]
     Dosage: 10-20 MG
     Route: 048
  8. CYCLOBENZAPRINE [Concomitant]
     Route: 048
  9. VICODIN [Concomitant]
     Indication: FIBROMYALGIA
     Dosage: 7.5/750 MG (FLUCTUATING)
     Route: 065
  10. GABAPENTIN [Concomitant]
     Route: 048
  11. DEPAKOTE [Concomitant]
     Dosage: 500 MG IN THE MORNING AND 1000 MG AT NIGHT
     Route: 048
  12. IBUPROFEN [Concomitant]
     Route: 048
  13. SOMA [Concomitant]
     Route: 065
  14. HYDROCODONE BITARTRATE [Concomitant]
     Route: 048
  15. ATIVAN [Concomitant]
     Dosage: 1-4 MG, EVERY 2 - 4 HOURS
     Route: 048
  16. AMBIEN [Concomitant]
     Route: 065

REACTIONS (10)
  - ARTHRALGIA [None]
  - BACK PAIN [None]
  - BIPOLAR DISORDER [None]
  - CONVULSION [None]
  - DIABETES MELLITUS [None]
  - GINGIVITIS [None]
  - INTERMITTENT EXPLOSIVE DISORDER [None]
  - PSYCHOTIC DISORDER [None]
  - SMALL INTESTINAL OBSTRUCTION [None]
  - SUBSTANCE ABUSE [None]
